FAERS Safety Report 6894516-6 (Version None)
Quarter: 2010Q3

REPORT INFORMATION
  Report Type: 
  Country: None (occurrence: None)
  Receive Date: 20100802
  Receipt Date: 20100719
  Transmission Date: 20110219
  Serious: Yes (Hospitalization)
  Sender: FDA-Public Use
  Company Number: FR-JNJCH-2010017334

PATIENT
  Sex: Male

DRUGS (3)
  1. VIRLIX [Suspect]
     Indication: URTICARIA
     Dosage: TEXT:10MG
     Route: 048
     Dates: start: 20100621, end: 20100621
  2. METHYLPREDNISOLONE SODIUM SUCCINATE [Suspect]
     Indication: URTICARIA
     Dosage: TEXT:1 DOSAGE FORM, ONCE
     Route: 042
     Dates: start: 20100621, end: 20100621
  3. AMOXICILLIN [Concomitant]
     Indication: PRODUCT USED FOR UNKNOWN INDICATION
     Dosage: TEXT:UNKNOWN
     Route: 065

REACTIONS (7)
  - AMNESIA [None]
  - BALANCE DISORDER [None]
  - CONFUSIONAL STATE [None]
  - DIPLOPIA [None]
  - DIZZINESS [None]
  - SOMNOLENCE [None]
  - VISION BLURRED [None]
